FAERS Safety Report 5614937-9 (Version None)
Quarter: 2008Q1

REPORT INFORMATION
  Report Type: 
  Country: None (occurrence: None)
  Receive Date: 20080204
  Receipt Date: 20080204
  Transmission Date: 20080703
  Serious: Yes (Hospitalization)
  Sender: FDA-Public Use
  Company Number: None

PATIENT
  Age: 23 Year
  Sex: Female

DRUGS (5)
  1. ZYVOX [Suspect]
     Indication: CRYPTOGENIC ORGANISING PNEUMONIA
     Dosage: 600MG BID PO
     Route: 048
     Dates: start: 20071018, end: 20071024
  2. ACYCLOVIR [Concomitant]
  3. SEPTRA SS [Concomitant]
  4. ARANESP [Concomitant]
  5. INFLUENZA VACCINE [Concomitant]

REACTIONS (1)
  - PANCYTOPENIA [None]
